FAERS Safety Report 6721427-9 (Version None)
Quarter: 2010Q2

REPORT INFORMATION
  Report Type: 
  Country: None (occurrence: None)
  Receive Date: 20100512
  Receipt Date: 20100503
  Transmission Date: 20101027
  Serious: Yes (Other)
  Sender: FDA-Public Use
  Company Number: BR-BRISTOL-MYERS SQUIBB COMPANY-15090038

PATIENT
  Sex: Male

DRUGS (4)
  1. DASATINIB [Suspect]
     Indication: CHRONIC MYELOID LEUKAEMIA
  2. IMATINIB MESILATE [Suspect]
  3. INTERFERON ALFA [Suspect]
  4. PREDNISONE [Suspect]

REACTIONS (1)
  - ACUTE LYMPHOCYTIC LEUKAEMIA [None]
